FAERS Safety Report 7787634-1 (Version None)
Quarter: 2011Q3

REPORT INFORMATION
  Report Type: 
  Country: None (occurrence: None)
  Receive Date: 20110929
  Receipt Date: 20110913
  Transmission Date: 20111222
  Serious: Yes (Other)
  Sender: FDA-Public Use
  Company Number: PHEH2011US04074

PATIENT
  Sex: Male

DRUGS (3)
  1. CALCIUM CARBONATE [Concomitant]
     Dosage: UNK UKN, UNK
  2. RECLAST [Suspect]
     Indication: OSTEOPOROSIS
     Dosage: UNK UKN, UNK
     Route: 042
     Dates: start: 20100623
  3. VITAMIN D [Concomitant]
     Dosage: UNK UKN, UNK

REACTIONS (7)
  - JOINT DISLOCATION [None]
  - ARTHRALGIA [None]
  - JOINT CREPITATION [None]
  - EUSTACHIAN TUBE DISORDER [None]
  - TOOTH DISORDER [None]
  - MASTICATION DISORDER [None]
  - MUSCULOSKELETAL DISCOMFORT [None]
